FAERS Safety Report 4552456-1 (Version None)
Quarter: 2005Q1

REPORT INFORMATION
  Report Type: 
  Country: None (occurrence: None)
  Receive Date: 20050114
  Receipt Date: 20040430
  Transmission Date: 20050727
  Serious: No
  Sender: FDA-Public Use
  Company Number: US-BRISTOL-MYERS SQUIBB COMPANY-12575916

PATIENT
  Age: 66 Year
  Sex: Male
  Weight: 95 kg

DRUGS (2)
  1. PLATINOL-AQ [Suspect]
     Indication: OESOPHAGEAL CARCINOMA
     Dosage: THERAPY DATES: 12-MAY-2003 TO 27-APR-2004
     Route: 042
  2. IRINOTECAN HCL [Suspect]
     Indication: OESOPHAGEAL CARCINOMA
     Route: 042

REACTIONS (1)
  - HYPERSENSITIVITY [None]
